FAERS Safety Report 24108963 (Version 1)
Quarter: 2024Q3

REPORT INFORMATION
  Report Type: Other
  Country: GB (occurrence: GB)
  Receive Date: 20240718
  Receipt Date: 20240718
  Transmission Date: 20241016
  Serious: Yes (Other)
  Sender: MACLEODS
  Company Number: None

PATIENT

DRUGS (1)
  1. IRBESARTAN [Suspect]
     Active Substance: IRBESARTAN
     Indication: Hypertension
     Route: 065
     Dates: end: 20240505

REACTIONS (7)
  - Chest discomfort [Unknown]
  - Neck pain [Unknown]
  - Pain in jaw [Unknown]
  - Ear pain [Unknown]
  - Pain in extremity [Unknown]
  - Chest pain [Recovering/Resolving]
  - Dysgeusia [Unknown]

NARRATIVE: CASE EVENT DATE: 20240302
